FAERS Safety Report 8123128-1 (Version None)
Quarter: 2012Q1

REPORT INFORMATION
  Report Type: 
  Country: None (occurrence: None)
  Receive Date: 20120208
  Receipt Date: 20120203
  Transmission Date: 20120608
  Serious: Yes (Hospitalization)
  Sender: FDA-Public Use
  Company Number: FR-BAYER-2012-012051

PATIENT
  Age: 72 Year
  Sex: Female
  Weight: 47.166 kg

DRUGS (10)
  1. AVASTIN [Concomitant]
     Dosage: C3
     Dates: start: 20111107
  2. SPASFON [Concomitant]
  3. PIPERACILLIN/TAZOBACTAM [Suspect]
     Indication: ANTIBIOTIC PROPHYLAXIS
     Dosage: UNK
     Route: 042
     Dates: start: 20120116, end: 20120119
  4. LEUCOVORIN CALCIUM [Concomitant]
     Dosage: C2
     Dates: start: 20111024
  5. DEBRIDAT [Concomitant]
     Dosage: 1 DF, ONCE
     Route: 048
     Dates: start: 20120118, end: 20120118
  6. ACETAMINOPHEN [Concomitant]
     Dosage: UNK UNK, PRN
  7. ENALAPRIL MALEATE [Concomitant]
     Dosage: 5 MG, QD
  8. LEUCOVORIN CALCIUM [Concomitant]
     Dosage: C1
     Dates: start: 20111010
  9. CIPROFLOXACIN [Suspect]
     Indication: ANTIBIOTIC PROPHYLAXIS
     Dosage: UNK
     Dates: start: 20120116, end: 20120119
  10. OXALIPLATIN [Concomitant]
     Dosage: INFUSION

REACTIONS (2)
  - PRURITUS GENERALISED [None]
  - GENERALISED ERYTHEMA [None]
